FAERS Safety Report 4357648-2 (Version None)
Quarter: 2004Q2

REPORT INFORMATION
  Report Type: 
  Country: None (occurrence: None)
  Receive Date: 20040510
  Receipt Date: 20040426
  Transmission Date: 20050107
  Serious: Yes (Hospitalization)
  Sender: FDA-Public Use
  Company Number: 2004211542CA

PATIENT
  Age: 46 Year
  Sex: Female
  Weight: 67 kg

DRUGS (8)
  1. CELECOXIB VS PLACEBO (CELECOXIB VS PLACEBO) CAPSULE [Suspect]
     Indication: COLON CANCER
     Dosage: 400 MG, BID, ORAL
     Route: 048
     Dates: start: 20040420
  2. CAMPTOSAR [Suspect]
     Indication: COLON CANCER
     Dosage: 306 MG, CYCLIC, IV
     Route: 042
     Dates: start: 20040420
  3. FLUOROURACIL [Suspect]
     Indication: COLON CANCER
     Dosage: 680 MG, CYCLIC, IV
     Route: 042
     Dates: start: 20040420
  4. LEUCOVORIN CALCIUM [Suspect]
     Indication: COLON CANCER
     Dosage: 680 MG, CYCLIC, IV; 4080 MG, CYCLIC, IV
     Route: 042
     Dates: start: 20040420
  5. LEUCOVORIN CALCIUM [Suspect]
     Indication: COLON CANCER
     Dosage: 680 MG, CYCLIC, IV; 4080 MG, CYCLIC, IV
     Route: 042
     Dates: start: 20040420
  6. COUMADIN [Concomitant]
  7. IMODIUM [Concomitant]
  8. ZOFRAN [Concomitant]

REACTIONS (3)
  - ABDOMINAL PAIN [None]
  - HAEMOGLOBIN DECREASED [None]
  - VOMITING [None]
